FAERS Safety Report 13336567 (Version 1)
Quarter: 2017Q1

REPORT INFORMATION
  Report Type: Spontaneous
  Country: US (occurrence: US)
  Receive Date: 20170315
  Receipt Date: 20170315
  Transmission Date: 20170428
  Serious: No
  Sender: FDA-Public Use
  Company Number: US-ASTRAZENECA-2017SE24532

PATIENT
  Sex: Female

DRUGS (2)
  1. FASLODEX [Suspect]
     Active Substance: FULVESTRANT
     Route: 030
  2. IBRANCE [Suspect]
     Active Substance: PALBOCICLIB
     Indication: BREAST CANCER
     Route: 048
     Dates: start: 20161020

REACTIONS (8)
  - Cyst [Unknown]
  - Fatigue [Unknown]
  - Leukopenia [Unknown]
  - Myalgia [Unknown]
  - Upper respiratory tract infection [Unknown]
  - Alopecia [Unknown]
  - Muscle spasms [Unknown]
  - Sinusitis [Unknown]
